FAERS Safety Report 8937960 (Version 1)
Quarter: 2012Q4

REPORT INFORMATION
  Report Type: 
  Country: IT (occurrence: IT)
  Receive Date: 20121130
  Receipt Date: 20121130
  Transmission Date: 20130627
  Serious: Yes (Other)
  Sender: FDA-Public Use
  Company Number: IT-ELI_LILLY_AND_COMPANY-IT201211007353

PATIENT

DRUGS (2)
  1. ALIMTA [Suspect]
     Indication: LUNG ADENOCARCINOMA
     Dosage: 800 mg, unknown
     Route: 042
     Dates: start: 20120928, end: 20120928
  2. CARBOPLATIN [Concomitant]
     Dosage: 380 mg, unknown
     Route: 042
     Dates: start: 20120928

REACTIONS (2)
  - Hepatotoxicity [Unknown]
  - Off label use [Unknown]
